FAERS Safety Report 4480295-9 (Version None)
Quarter: 2004Q3

REPORT INFORMATION
  Report Type: 
  Country: None (occurrence: None)
  Receive Date: 20040923
  Receipt Date: 20040726
  Transmission Date: 20050211
  Serious: No
  Sender: FDA-Public Use
  Company Number: USA031255287

PATIENT
  Age: 77 Year
  Sex: Female
  Weight: 43 kg

DRUGS (7)
  1. FORTEO [Suspect]
     Indication: OSTEOPOROSIS
     Dosage: 20 UG/1 DAY
     Dates: start: 20031208
  2. ZANTAC [Concomitant]
  3. VENTOLIN INHALER (SALBUTAMOL) [Concomitant]
  4. VITAMIN D [Concomitant]
  5. MULTI-VITAMINS [Concomitant]
  6. MECLIZINE [Concomitant]
  7. LIPITOR [Concomitant]

REACTIONS (5)
  - ABDOMINAL DISTENSION [None]
  - BALANCE DISORDER [None]
  - DIZZINESS EXERTIONAL [None]
  - INJECTION SITE HAEMORRHAGE [None]
  - MENTAL IMPAIRMENT [None]
